FAERS Safety Report 17945938 (Version 1)
Quarter: 2020Q2

REPORT INFORMATION
  Report Type: Spontaneous
  Country: US (occurrence: US)
  Receive Date: 20200625
  Receipt Date: 20200625
  Transmission Date: 20200714
  Serious: Yes (Other)
  Sender: FDA-Public Use
  Company Number: US-GW PHARMA-202006USGW02245

PATIENT

DRUGS (2)
  1. EPIDIOLEX [Suspect]
     Active Substance: CANNABIDIOL
     Indication: SEIZURE
     Dosage: 800 MILLIGRAM, BID
     Route: 048
     Dates: start: 201904
  2. EPIDIOLEX [Suspect]
     Active Substance: CANNABIDIOL
     Dosage: UNK (DOSE DECREASED)
     Route: 048

REACTIONS (4)
  - Seizure [Unknown]
  - Malaise [Unknown]
  - Product prescribing issue [Unknown]
  - Incorrect dose administered [Unknown]
